FAERS Safety Report 13794946 (Version 1)
Quarter: 2017Q3

REPORT INFORMATION
  Report Type: Spontaneous
  Country: FR (occurrence: FR)
  Receive Date: 20170726
  Receipt Date: 20170726
  Transmission Date: 20171127
  Serious: Yes (Other)
  Sender: FDA-Public Use
  Company Number: FR-ASTRAZENECA-2017SE75529

PATIENT
  Age: 22223 Day
  Sex: Female
  Weight: 110 kg

DRUGS (1)
  1. ALVESCO [Suspect]
     Active Substance: CICLESONIDE
     Indication: COUGH
     Route: 055
     Dates: start: 20170622, end: 20170625

REACTIONS (3)
  - Limb injury [Unknown]
  - Musculoskeletal chest pain [Unknown]
  - Pain in extremity [Unknown]

NARRATIVE: CASE EVENT DATE: 20170623
